FAERS Safety Report 25310324 (Version 5)
Quarter: 2025Q4

REPORT INFORMATION
  Report Type: Report from Study
  Country: GB (occurrence: GB)
  Receive Date: 20250514
  Receipt Date: 20251202
  Transmission Date: 20260118
  Serious: Yes (Other)
  Sender: ALEXION PHARMACEUTICALS
  Company Number: GB-ASTRAZENECA-202505GBR007984GB

PATIENT
  Age: 44 Year
  Sex: Female

DRUGS (2)
  1. STRENSIQ [Suspect]
     Active Substance: ASFOTASE ALFA
     Dosage: 64/0.64 MILLIGRAM PER MILLILITRE, SIX TIMES/WEEK
     Dates: start: 20211101
  2. STRENSIQ [Suspect]
     Active Substance: ASFOTASE ALFA
     Dosage: 64MG (0.64ML)
     Dates: start: 20210718, end: 202507

REACTIONS (7)
  - Lower respiratory tract infection [Unknown]
  - Pertussis [Unknown]
  - Nasopharyngitis [Unknown]
  - Product dose omission issue [Unknown]
  - Mass [Unknown]
  - Pain in extremity [Unknown]
  - Drug ineffective [Unknown]

NARRATIVE: CASE EVENT DATE: 20250401
